FAERS Safety Report 8152560 (Version 2)
Quarter: 2013Q1

REPORT INFORMATION
  Report Type: Spontaneous
  Country: US (occurrence: US)
  Receive Date: 20110922
  Receipt Date: 20130102
  Transmission Date: 20140127
  Serious: Yes (Other)
  Sender: FDA-Public Use
  Company Number: US-ASTRAZENECA-2011SE12513

PATIENT
  Age: 537 Month
  Sex: Male

DRUGS (8)
  1. SEROQUEL [Suspect]
     Route: 048
     Dates: start: 20031117
  2. PRAVACHOL [Concomitant]
     Dates: start: 20031120
  3. TRILEPTAL [Concomitant]
     Dates: start: 20040301
  4. SERTRALINE HCL [Concomitant]
     Route: 048
     Dates: start: 200708
  5. SERTRALINE HCL [Concomitant]
     Dates: start: 20031215
  6. ABILIFY [Concomitant]
     Route: 048
     Dates: start: 200708
  7. TEMAZEPAM [Concomitant]
     Dates: start: 200708
  8. BUDEPRION XL [Concomitant]
     Route: 048
     Dates: start: 200708

REACTIONS (3)
  - Pancreatitis [Unknown]
  - Diabetic coma [Unknown]
  - Type 2 diabetes mellitus [Unknown]
